FAERS Safety Report 4638009-5 (Version None)
Quarter: 2005Q2

REPORT INFORMATION
  Report Type: 
  Country: None (occurrence: None)
  Receive Date: 20050415
  Receipt Date: 20050412
  Transmission Date: 20051028
  Serious: Yes (Death, Life-Threatening, Hospitalization)
  Sender: FDA-Public Use
  Company Number: FRWYE378828JAN05

PATIENT
  Age: 81 Year
  Sex: Male

DRUGS (7)
  1. EFFEXOR XR [Suspect]
     Dosage: 37.5 MG 3X PER 1 DAY ORAL
     Route: 048
     Dates: start: 20041101, end: 20041122
  2. ATACAND [Suspect]
     Dosage: 8 MG 1X PER 1 DAY ORAL
     Route: 048
     Dates: end: 20041122
  3. ENOXOR (ENOXACIN SESQUIHYDRATE, , 0) [Suspect]
     Dosage: 2 TABLET 1X PER 1 WK ORAL
     Route: 048
     Dates: end: 20041123
  4. NOCTAMID (LORMETAZEPAM, , 0) [Suspect]
     Dosage: 1 TABLET 1X PER 1 DAY ORAL
     Route: 048
     Dates: end: 20041123
  5. NOPRON (NIAPRAZINE, , 0) [Suspect]
     Dosage: 2 DOSE 1X PER 1 DAY ORAL
     Route: 048
     Dates: end: 20041123
  6. VASTAREL (TRIMETAZIDINE HYDROCHLORIDE, , 0) [Suspect]
     Dosage: ORAL
     Route: 048
     Dates: end: 20041123
  7. LANTUS [Concomitant]

REACTIONS (9)
  - APHASIA [None]
  - BLOOD PRESSURE INCREASED [None]
  - BRAIN HERNIATION [None]
  - CEREBRAL HAEMORRHAGE [None]
  - FALL [None]
  - HEMIPLEGIA [None]
  - MALAISE [None]
  - MOTOR DYSFUNCTION [None]
  - SUBDURAL HAEMATOMA [None]
